FAERS Safety Report 4713867-4 (Version None)
Quarter: 2005Q3

REPORT INFORMATION
  Report Type: 
  Country: None (occurrence: None)
  Receive Date: 20050712
  Receipt Date: 20050629
  Transmission Date: 20060218
  Serious: Yes (Disabling, Other)
  Sender: FDA-Public Use
  Company Number: 2005083732

PATIENT
  Age: 47 Year
  Sex: Male
  Weight: 80.7403 kg

DRUGS (6)
  1. VIAGRA [Suspect]
     Indication: ERECTILE DYSFUNCTION
     Dosage: 50 MG (50 MG, AS NECESSARY), ORAL
     Route: 048
     Dates: start: 20020524, end: 20031211
  2. CARDIZEM CD [Concomitant]
  3. AVALIDE [Concomitant]
  4. AVAPRO [Concomitant]
  5. FOLIC ACID [Concomitant]
  6. HYDROCHLOROTHIAZIDE [Concomitant]

REACTIONS (5)
  - ACUTE SINUSITIS [None]
  - BLOOD CHOLESTEROL INCREASED [None]
  - EYELID PTOSIS [None]
  - OPTIC ISCHAEMIC NEUROPATHY [None]
  - OPTIC NERVE SHEATH HAEMORRHAGE [None]
